FAERS Safety Report 6310112-3 (Version None)
Quarter: 2009Q3

REPORT INFORMATION
  Report Type: 
  Country: None (occurrence: None)
  Receive Date: 20090814
  Receipt Date: 20090805
  Transmission Date: 20100115
  Serious: Yes (Death)
  Sender: FDA-Public Use
  Company Number: DE-ABBOTT-09P-062-0587336-00

PATIENT
  Sex: Female
  Weight: 97 kg

DRUGS (12)
  1. NIASPAN [Suspect]
     Indication: DRUG USE FOR UNKNOWN INDICATION
     Route: 048
     Dates: start: 20070301
  2. BISOPROLOL [Concomitant]
     Indication: CORONARY ARTERY DISEASE
     Dates: start: 20070301
  3. BISOPROLOL [Concomitant]
     Indication: HYPERTENSION
  4. HEART ASPIRIN [Concomitant]
     Indication: CORONARY ARTERY DISEASE
     Dates: start: 20070301
  5. SIMVASTATIN [Concomitant]
     Indication: CORONARY ARTERY DISEASE
     Dosage: 20-40 MG
     Dates: start: 20070301
  6. DICLOFENAC [Concomitant]
     Indication: DRUG USE FOR UNKNOWN INDICATION
     Dates: start: 20070301, end: 20080404
  7. RAMIPRIL [Concomitant]
     Indication: CORONARY ARTERY DISEASE
     Dates: start: 20070301
  8. RAMIPRIL [Concomitant]
     Indication: HYPERTENSION
  9. DURADIURET [Concomitant]
     Indication: CORONARY ARTERY DISEASE
     Dosage: 50/25
     Dates: start: 20070301
  10. AMLODIPINE [Concomitant]
     Indication: CORONARY ARTERY DISEASE
     Dates: start: 20071201
  11. GLUCOPHAGE [Concomitant]
     Indication: DIABETES MELLITUS
     Dates: start: 20070501
  12. GLUCOPHAGE [Concomitant]
     Indication: GLUCOSE TOLERANCE IMPAIRED

REACTIONS (1)
  - SUDDEN DEATH [None]
